FAERS Safety Report 10161420 (Version 1)
Quarter: 2014Q2

REPORT INFORMATION
  Report Type: Report from Study
  Country: CN (occurrence: CN)
  Receive Date: 20140509
  Receipt Date: 20140509
  Transmission Date: 20141212
  Serious: Yes (Other)
  Sender: FDA-Public Use
  Company Number: CN-ROCHE-1397089

PATIENT
  Age: 42 Year
  Sex: Male
  Weight: 51 kg

DRUGS (2)
  1. PEGASYS [Suspect]
     Indication: HEPATITIS C
     Route: 058
     Dates: start: 20131003, end: 201312
  2. RIBAVIRIN [Suspect]
     Indication: HEPATITIS C
     Route: 048
     Dates: start: 20131003, end: 201312

REACTIONS (3)
  - White blood cell count decreased [Unknown]
  - Hypothyroidism [Unknown]
  - Hepatitis C [Not Recovered/Not Resolved]
